FAERS Safety Report 9777711 (Version 2)
Quarter: 2013Q4

REPORT INFORMATION
  Report Type: Spontaneous
  Country: FR (occurrence: FR)
  Receive Date: 20131223
  Receipt Date: 20131223
  Transmission Date: 20140711
  Serious: Yes (Other)
  Sender: FDA-Public Use
  Company Number: FR-ORION CORPORATION ORION PHARMA-ENTC2013-0318

PATIENT
  Sex: Female
  Weight: 65 kg

DRUGS (7)
  1. STALEVO [Suspect]
     Indication: PARKINSON^S DISEASE
     Dosage: STRENGTH: 150/37.5/200 MG
     Route: 048
     Dates: start: 20110328
  2. STALEVO [Suspect]
     Dosage: STRENGTH: 150/37.5/200 MG
     Route: 048
  3. LEVOTHYROX [Concomitant]
     Indication: ANXIETY
     Dosage: STRENGTH: 75 MCG
     Route: 065
  4. XANAX [Concomitant]
     Indication: ANXIETY
     Dosage: STRENGTH: 0.5 MG
     Route: 065
  5. XANAX [Concomitant]
     Indication: PANIC ATTACK
  6. SEROPLEX [Concomitant]
     Dosage: STRENGTH: 15 MG
     Route: 065
  7. IMOVANE [Concomitant]
     Route: 065

REACTIONS (8)
  - Tooth discolouration [Not Recovered/Not Resolved]
  - Tooth loss [Not Recovered/Not Resolved]
  - Chromaturia [Unknown]
  - Tremor [Not Recovered/Not Resolved]
  - Weight decreased [Not Recovered/Not Resolved]
  - Alopecia [Not Recovered/Not Resolved]
  - Throat tightness [Not Recovered/Not Resolved]
  - Suffocation feeling [Not Recovered/Not Resolved]
